FAERS Safety Report 9169015 (Version 1)
Quarter: 2013Q1

REPORT INFORMATION
  Report Type: Report from Study
  Country: BR (occurrence: BR)
  Receive Date: 20130318
  Receipt Date: 20130318
  Transmission Date: 20140127
  Serious: Yes (Death, Other)
  Sender: FDA-Public Use
  Company Number: BR-ROCHE-755854

PATIENT
  Age: 59 None
  Sex: Female
  Weight: 65 kg

DRUGS (7)
  1. MABTHERA [Suspect]
     Indication: SCLERODERMA
     Route: 042
     Dates: start: 20100815, end: 20100930
  2. ENALAPRIL [Concomitant]
     Indication: HYPERTENSION
     Route: 065
  3. PANTOPRAZOLE [Concomitant]
     Route: 065
  4. AMITRIPTYLINE [Concomitant]
     Route: 065
  5. INDOMETHACIN [Concomitant]
     Route: 065
  6. SELOZOK [Concomitant]
     Route: 065
  7. ALPRAZOLAM [Concomitant]
     Route: 065

REACTIONS (5)
  - Systemic sclerosis [Fatal]
  - Pulmonary fibrosis [Not Recovered/Not Resolved]
  - Arrhythmia [Not Recovered/Not Resolved]
  - Decreased appetite [Unknown]
  - Drug ineffective [Unknown]
